FAERS Safety Report 21911836 (Version 1)
Quarter: 2023Q1

REPORT INFORMATION
  Report Type: Spontaneous
  Country: SI (occurrence: SI)
  Receive Date: 20230125
  Receipt Date: 20230125
  Transmission Date: 20230418
  Serious: Yes (Other)
  Sender: FDA-Public Use
  Company Number: SI-009507513-2301SVN008547

PATIENT
  Age: 65 Year
  Sex: Male

DRUGS (1)
  1. PEMBROLIZUMAB [Suspect]
     Active Substance: PEMBROLIZUMAB
     Indication: Lung cancer metastatic

REACTIONS (6)
  - Diarrhoea haemorrhagic [Unknown]
  - Immune-mediated enterocolitis [Unknown]
  - Asthenia [Unknown]
  - Abdominal pain [Unknown]
  - C-reactive protein increased [Unknown]
  - Therapy partial responder [Unknown]
